FAERS Safety Report 7489163-1 (Version None)
Quarter: 2011Q2

REPORT INFORMATION
  Report Type: 
  Country: None (occurrence: None)
  Receive Date: 20110518
  Receipt Date: 20110512
  Transmission Date: 20111010
  Serious: Yes (Hospitalization, Other)
  Sender: FDA-Public Use
  Company Number: FR-ABBOTT-11P-056-0721231-00

PATIENT
  Sex: Female

DRUGS (28)
  1. XANAX [Concomitant]
     Indication: PRODUCT USED FOR UNKNOWN INDICATION
     Dosage: DAILY DOSE: 1MG
     Dates: end: 20110216
  2. INNOHEP [Concomitant]
     Indication: THROMBOSIS
     Route: 058
     Dates: start: 20110221, end: 20110223
  3. FORLAX [Concomitant]
     Indication: PRODUCT USED FOR UNKNOWN INDICATION
     Route: 048
     Dates: start: 20110223, end: 20110228
  4. TENORMIN [Concomitant]
     Indication: PRODUCT USED FOR UNKNOWN INDICATION
     Dates: end: 20110216
  5. TENORMIN [Concomitant]
  6. PANTOPRAZOLE [Suspect]
     Route: 048
     Dates: end: 20110225
  7. DIFFU-K [Concomitant]
     Indication: PRODUCT USED FOR UNKNOWN INDICATION
     Route: 048
     Dates: start: 20110221, end: 20110222
  8. ATARAX [Concomitant]
     Indication: PRODUCT USED FOR UNKNOWN INDICATION
     Route: 048
     Dates: end: 20110216
  9. TIMOFEROL [Concomitant]
     Indication: PRODUCT USED FOR UNKNOWN INDICATION
     Dosage: 2 DOSAGE FORMS DAILY
     Dates: end: 20110216
  10. ASPIRIN [Concomitant]
     Indication: PRODUCT USED FOR UNKNOWN INDICATION
  11. FENOFIBRATE [Suspect]
     Route: 048
     Dates: start: 20110201, end: 20110223
  12. AMOXICILLIN [Suspect]
     Indication: PRODUCT USED FOR UNKNOWN INDICATION
     Route: 048
     Dates: start: 20110222, end: 20110303
  13. ATARAX [Concomitant]
     Dosage: DAILY DOSE: 25MG
     Route: 048
     Dates: start: 20110201, end: 20110222
  14. LEVOTHYROXINE SODIUM [Concomitant]
     Indication: PRODUCT USED FOR UNKNOWN INDICATION
     Dosage: DAILY DOSE: 25MG
     Route: 048
     Dates: end: 20110216
  15. ACETAMINOPHEN [Concomitant]
  16. HALDOL [Concomitant]
     Indication: PRODUCT USED FOR UNKNOWN INDICATION
     Dosage: 3 DROPS DAILY
     Dates: end: 20110216
  17. CLARITHROMYCIN [Suspect]
     Indication: PRODUCT USED FOR UNKNOWN INDICATION
     Route: 048
     Dates: start: 20110223, end: 20110301
  18. PANTOPRAZOLE [Suspect]
     Indication: HELICOBACTER INFECTION
     Route: 048
     Dates: start: 20110217, end: 20110228
  19. IRBESARTAN + HYDROCHLOROTHIAZIDE [Suspect]
     Indication: PRODUCT USED FOR UNKNOWN INDICATION
     Dosage: DAILY DOSE: 1-300MG/25 MG
     Route: 048
     Dates: start: 20110201, end: 20110216
  20. IRBESARTAN + HYDROCHLOROTHIAZIDE [Suspect]
     Route: 048
     Dates: start: 20110201, end: 20110223
  21. CITALOPRAM HYDROBROMIDE [Concomitant]
     Indication: PRODUCT USED FOR UNKNOWN INDICATION
     Route: 048
     Dates: start: 20110223
  22. MEPRONIZINE [Concomitant]
     Indication: PRODUCT USED FOR UNKNOWN INDICATION
     Dates: end: 20110216
  23. AERIUS [Concomitant]
     Indication: PRODUCT USED FOR UNKNOWN INDICATION
     Dates: end: 20110216
  24. MEPRONIZINE [Concomitant]
  25. XANAX [Concomitant]
     Dosage: DAILY DOSE: 1MG
     Route: 048
     Dates: start: 20110201, end: 20110223
  26. HALDOL [Concomitant]
     Dosage: 3 DROPS DAILY
  27. FENOFIBRATE [Suspect]
     Indication: HELICOBACTER INFECTION
     Route: 048
     Dates: end: 20110216
  28. ACETAMINOPHEN [Concomitant]
     Indication: PRODUCT USED FOR UNKNOWN INDICATION
     Dates: end: 20110216

REACTIONS (8)
  - GASTRIC ULCER [None]
  - RENAL FAILURE ACUTE [None]
  - GASTROINTESTINAL HAEMORRHAGE [None]
  - HAEMATEMESIS [None]
  - GASTROINTESTINAL ULCER [None]
  - ESCHERICHIA URINARY TRACT INFECTION [None]
  - RENAL TUBULAR NECROSIS [None]
  - SHOCK HAEMORRHAGIC [None]
